FAERS Safety Report 23225401 (Version 3)
Quarter: 2024Q1

REPORT INFORMATION
  Report Type: Spontaneous
  Country: FR (occurrence: FR)
  Receive Date: 20231124
  Receipt Date: 20240223
  Transmission Date: 20240409
  Serious: Yes (Other)
  Sender: FDA-Public Use
  Company Number: FR-BEH-2023165546

PATIENT
  Sex: Male
  Weight: 68.5 kg

DRUGS (2)
  1. HIZENTRA [Suspect]
     Active Substance: HUMAN IMMUNOGLOBULIN G
     Indication: Lewis-Sumner syndrome
     Dosage: 23 GRAM, QW
     Route: 058
     Dates: start: 202309
  2. PRIVIGEN [Suspect]
     Active Substance: HUMAN IMMUNOGLOBULIN G
     Indication: Lewis-Sumner syndrome
     Dosage: 135 GRAM
     Route: 042
     Dates: start: 202205, end: 202309

REACTIONS (3)
  - Lewis-Sumner syndrome [Unknown]
  - Lewis-Sumner syndrome [Recovering/Resolving]
  - Drug dependence [Unknown]

NARRATIVE: CASE EVENT DATE: 20231101
